FAERS Safety Report 6601485-2 (Version None)
Quarter: 2010Q1

REPORT INFORMATION
  Report Type: 
  Country: None (occurrence: None)
  Receive Date: 20100217
  Receipt Date: 20100127
  Transmission Date: 20100710
  Serious: Yes (Other)
  Sender: FDA-Public Use
  Company Number: WAES 1002USA00085

PATIENT
  Age: 43 Year
  Sex: Female

DRUGS (2)
  1. FOSAMAX [Suspect]
     Indication: METASTASES TO BONE
     Dosage: IV
     Route: 042
  2. ZOMETA [Suspect]
     Indication: METASTASES TO BONE
     Dosage: IV
     Route: 042

REACTIONS (1)
  - OSTEONECROSIS [None]
